FAERS Safety Report 24583535 (Version 2)
Quarter: 2024Q4

REPORT INFORMATION
  Report Type: Report from Study
  Country: US (occurrence: US)
  Receive Date: 20241106
  Receipt Date: 20241202
  Transmission Date: 20250114
  Serious: Yes (Other)
  Sender: ALEXION PHARMACEUTICALS
  Company Number: US-AstraZeneca-CH-00737755A

PATIENT
  Age: 48 Year
  Weight: 82.553 kg

DRUGS (8)
  1. TEZEPELUMAB [Suspect]
     Active Substance: TEZEPELUMAB
     Indication: Asthma
     Dosage: UNK UNK, Q4W
  2. TEZEPELUMAB [Suspect]
     Active Substance: TEZEPELUMAB
     Dosage: UNK UNK, Q4W
  3. TEZEPELUMAB [Suspect]
     Active Substance: TEZEPELUMAB
     Dosage: UNK UNK, Q4W
  4. TEZEPELUMAB [Suspect]
     Active Substance: TEZEPELUMAB
     Dosage: UNK UNK, Q4W
  5. MEDROL [Concomitant]
     Active Substance: METHYLPREDNISOLONE
  6. MEDROL [Concomitant]
     Active Substance: METHYLPREDNISOLONE
     Route: 065
  7. CRESTOR [Concomitant]
     Active Substance: ROSUVASTATIN CALCIUM
  8. CRESTOR [Concomitant]
     Active Substance: ROSUVASTATIN CALCIUM

REACTIONS (16)
  - Immunodeficiency [Unknown]
  - Cough [Unknown]
  - Exercise tolerance decreased [Unknown]
  - Dyspnoea [Unknown]
  - Nasopharyngitis [Recovering/Resolving]
  - Dry eye [Unknown]
  - Respiratory tract infection [Unknown]
  - Productive cough [Recovering/Resolving]
  - Dyspnoea exertional [Unknown]
  - Cough [Recovered/Resolved]
  - Eye irritation [Unknown]
  - Palpitations [Unknown]
  - Skin disorder [Unknown]
  - Asthma [Unknown]
  - Seasonal allergy [Unknown]
  - Skin plaque [Unknown]
